FAERS Safety Report 17096791 (Version 2)
Quarter: 2021Q4

REPORT INFORMATION
  Report Type: Spontaneous
  Country: CN (occurrence: CN)
  Receive Date: 20191202
  Receipt Date: 20211228
  Transmission Date: 20220303
  Serious: Yes (Other)
  Sender: FDA-Public Use
  Company Number: CN-SUN PHARMACEUTICAL INDUSTRIES LTD-2019R1-228757

PATIENT
  Age: 68 Year
  Sex: Female

DRUGS (8)
  1. CLONAZEPAM [Suspect]
     Active Substance: CLONAZEPAM
     Indication: Dystonia
     Dosage: UNK
     Route: 065
  2. FLUPENTIXOL\MELITRACEN [Suspect]
     Active Substance: FLUPENTIXOL\MELITRACEN
     Indication: Generalised anxiety disorder
     Dosage: 1 TABLET, TID, 0.5 MG: 10 MG
     Route: 065
  3. METHYLCOBALAMIN [Suspect]
     Active Substance: METHYLCOBALAMIN
     Indication: Dystonia
     Dosage: UNK
     Route: 065
  4. PAROXETINE [Suspect]
     Active Substance: PAROXETINE
     Indication: Generalised anxiety disorder
     Dosage: 20 MILLIGRAM, DAILY
     Route: 065
  5. PAROXETINE [Suspect]
     Active Substance: PAROXETINE
     Dosage: 30 MILLIGRAM, QD
     Route: 065
  6. VENLAFAXINE [Suspect]
     Active Substance: VENLAFAXINE HYDROCHLORIDE
     Indication: Generalised anxiety disorder
     Dosage: 75 MILLIGRAM, DAILY
     Route: 065
  7. VITAMIN E [Suspect]
     Active Substance: .ALPHA.-TOCOPHEROL
     Indication: Dystonia
     Dosage: UNK
     Route: 065
  8. BUSPIRONE [Suspect]
     Active Substance: BUSPIRONE HYDROCHLORIDE
     Indication: Generalised anxiety disorder
     Dosage: 10 MILLIGRAM, TID
     Route: 065

REACTIONS (1)
  - Drug ineffective [Unknown]
